FAERS Safety Report 7085695-9 (Version None)
Quarter: 2010Q4

REPORT INFORMATION
  Report Type: 
  Country: None (occurrence: None)
  Receive Date: 20101001
  Receipt Date: 20100713
  Transmission Date: 20110411
  Serious: No
  Sender: FDA-Public Use
  Company Number: 1000015096

PATIENT
  Age: 67 Year
  Sex: Female

DRUGS (6)
  1. BYSTOLIC [Suspect]
     Indication: HYPERTENSION
     Dosage: 20 MG, (10 MG, 2 IN 1 D), ORAL
     Route: 048
     Dates: start: 20100701, end: 20100707
  2. LEVOXYL [Concomitant]
  3. CYMBALTA [Concomitant]
  4. LIPITOR [Concomitant]
  5. ALPHAGAN P [Concomitant]
  6. TIMOPTIC [Concomitant]

REACTIONS (1)
  - BLOOD GLUCOSE INCREASED [None]
